FAERS Safety Report 11140290 (Version 1)
Quarter: 2015Q2

REPORT INFORMATION
  Report Type: Spontaneous
  Country: US (occurrence: US)
  Receive Date: 20150525
  Receipt Date: 20150525
  Transmission Date: 20150821
  Serious: Yes (Other)
  Sender: FDA-Public Use
  Company Number: US-JNJFOC-20121006099

PATIENT

DRUGS (2)
  1. RISPERIDONE. [Suspect]
     Active Substance: RISPERIDONE
     Indication: PRODUCT USED FOR UNKNOWN INDICATION
     Dosage: 2-6 MG PER DAY
     Route: 065
  2. UNKNOWN MEDICATION [Suspect]
     Active Substance: UNSPECIFIED INGREDIENT
     Indication: PRODUCT USED FOR UNKNOWN INDICATION
     Route: 065

REACTIONS (10)
  - Pain in extremity [Unknown]
  - Weight increased [Unknown]
  - Blood glucose increased [Unknown]
  - Agitation [Unknown]
  - Headache [Unknown]
  - Nausea [Unknown]
  - Somnolence [Unknown]
  - Dyspepsia [Unknown]
  - Hyperprolactinaemia [Unknown]
  - Diarrhoea [Unknown]
